FAERS Safety Report 7185505-5 (Version None)
Quarter: 2010Q4

REPORT INFORMATION
  Report Type: 
  Country: None (occurrence: None)
  Receive Date: 20101222
  Receipt Date: 20101021
  Transmission Date: 20110411
  Serious: No
  Sender: FDA-Public Use
  Company Number: US-TYCO HEALTHCARE/MALLINCKRODT-T201002169

PATIENT
  Age: 65 Year
  Sex: Male

DRUGS (2)
  1. TECHNETIUM TC 99M SESTAMIBI [Suspect]
     Indication: SCAN
     Dosage: UNK
     Route: 042
     Dates: start: 20101005, end: 20101005
  2. ULTRA-TECHNEKOW [Concomitant]
     Indication: SCAN
     Dosage: 13 MCI, UNK
     Dates: start: 20101005, end: 20101005

REACTIONS (1)
  - DRUG INEFFECTIVE [None]
